FAERS Safety Report 11125238 (Version 1)
Quarter: 2015Q2

REPORT INFORMATION
  Report Type: Report from Study
  Country: US (occurrence: US)
  Receive Date: 20150520
  Receipt Date: 20150520
  Transmission Date: 20150821
  Serious: Yes (Other)
  Sender: FDA-Public Use
  Company Number: US-SA-2015SA065788

PATIENT
  Age: 51 Year
  Sex: Male

DRUGS (2)
  1. AMLODIPINE BESILATE [Concomitant]
     Active Substance: AMLODIPINE BESYLATE
     Indication: HYPERTENSION
     Dosage: STRENGTH: 5 MG
  2. LANTUS [Suspect]
     Active Substance: INSULIN GLARGINE
     Indication: DIABETES MELLITUS
     Dosage: DOSE,FREQUENCUY AND DAILY DOSE: 35 , BID, ROUTE: SQ
     Dates: start: 201505, end: 20150511

REACTIONS (2)
  - Diabetic ulcer [Unknown]
  - Drug administration error [Unknown]

NARRATIVE: CASE EVENT DATE: 201505
